FAERS Safety Report 11544759 (Version 1)
Quarter: 2015Q3

REPORT INFORMATION
  Report Type: Spontaneous
  Country: CA (occurrence: None)
  Receive Date: 20150923
  Receipt Date: 20150923
  Transmission Date: 20151125
  Serious: Yes (Hospitalization)
  Sender: FDA-Public Use
  Company Number: None

PATIENT
  Age: 56 Year
  Sex: Female
  Weight: 48 kg

DRUGS (2)
  1. DAUNORUBICIN [Suspect]
     Active Substance: DAUNORUBICIN
     Dates: end: 20100709
  2. CYTARABINE. [Suspect]
     Active Substance: CYTARABINE
     Dates: end: 20100713

REACTIONS (6)
  - Bronchoalveolar lavage abnormal [None]
  - Acute respiratory distress syndrome [None]
  - Lung infiltration [None]
  - Pulmonary alveolar haemorrhage [None]
  - Pleural effusion [None]
  - Hypoxia [None]

NARRATIVE: CASE EVENT DATE: 20100730
